FAERS Safety Report 24830412 (Version 1)
Quarter: 2025Q1

REPORT INFORMATION
  Report Type: Spontaneous
  Country: US (occurrence: US)
  Receive Date: 20250110
  Receipt Date: 20250110
  Transmission Date: 20250408
  Serious: Yes (Other)
  Sender: BAYER HEALTHCARE LLC
  Company Number: US-BAYER-2025A003758

PATIENT
  Age: 50 Year
  Sex: Male

DRUGS (4)
  1. ASPIRIN [Suspect]
     Active Substance: ASPIRIN
  2. CLOPIDOGREL [Suspect]
     Active Substance: CLOPIDOGREL BISULFATE
  3. CILOSTAZOL [Concomitant]
     Active Substance: CILOSTAZOL
  4. EDOXABAN [Concomitant]
     Active Substance: EDOXABAN

REACTIONS (5)
  - Haematochezia [None]
  - Haemoglobin decreased [None]
  - Melaena [None]
  - Oesophageal ulcer haemorrhage [None]
  - Gastrointestinal haemorrhage [None]
